FAERS Safety Report 16081401 (Version 1)
Quarter: 2019Q1

REPORT INFORMATION
  Report Type: Spontaneous
  Country: CA (occurrence: CA)
  Receive Date: 20190316
  Receipt Date: 20190316
  Transmission Date: 20190418
  Serious: Yes (Death, Other)
  Sender: FDA-Public Use
  Company Number: CA-AUROBINDO-AUR-APL-2019-013873

PATIENT

DRUGS (4)
  1. VANCOMYCIN HYDROCHLORIDE. [Suspect]
     Active Substance: VANCOMYCIN HYDROCHLORIDE
     Indication: HYPERSENSITIVITY
     Dosage: UNK
     Route: 065
  2. AMPHOTERICIN B. [Suspect]
     Active Substance: AMPHOTERICIN B
     Indication: SINUSITIS
     Dosage: UNK
     Route: 065
  3. MEROPENEM INJECTION [Suspect]
     Active Substance: MEROPENEM
     Indication: SINUSITIS
     Dosage: UNK
     Route: 065
  4. METHYLPREDNISOLONE. [Suspect]
     Active Substance: METHYLPREDNISOLONE
     Indication: HYPERSENSITIVITY
     Dosage: UNK
     Route: 065

REACTIONS (3)
  - Bone marrow failure [Fatal]
  - Renal failure [Fatal]
  - Respiratory failure [Fatal]
